FAERS Safety Report 9526204 (Version 1)
Quarter: 2013Q3

REPORT INFORMATION
  Report Type: Spontaneous
  Country: US (occurrence: US)
  Receive Date: 20130916
  Receipt Date: 20130916
  Transmission Date: 20140515
  Serious: No
  Sender: FDA-Public Use
  Company Number: US-TEVA-432165USA

PATIENT
  Age: 83 Year
  Sex: Male
  Weight: 67.19 kg

DRUGS (8)
  1. PROAIR HFA [Suspect]
     Indication: PROPHYLAXIS AGAINST BRONCHOSPASM
  2. SEREVENT [Concomitant]
     Indication: ASTHMA
  3. SEREVENT [Concomitant]
     Indication: CHRONIC OBSTRUCTIVE PULMONARY DISEASE
  4. FLOVENT [Concomitant]
     Indication: ASTHMA
  5. FLOVENT [Concomitant]
     Indication: CHRONIC OBSTRUCTIVE PULMONARY DISEASE
  6. ASTELIN [Concomitant]
     Indication: HYPERSENSITIVITY
  7. FLUTICASONE [Concomitant]
     Indication: HYPERSENSITIVITY
  8. LEXAPRO [Concomitant]
     Indication: DEPRESSION

REACTIONS (2)
  - Stomatitis [Not Recovered/Not Resolved]
  - Stomatitis [Not Recovered/Not Resolved]
